FAERS Safety Report 13314479 (Version 9)
Quarter: 2017Q4

REPORT INFORMATION
  Report Type: Report from Study
  Country: US (occurrence: US)
  Receive Date: 20170309
  Receipt Date: 20171127
  Transmission Date: 20180320
  Serious: Yes (Hospitalization)
  Sender: FDA-Public Use
  Company Number: US-ACTELION-A-NJ2016-146953

PATIENT
  Age: 17 Year
  Sex: Female
  Weight: 49.89 kg

DRUGS (6)
  1. ADEMPAS [Concomitant]
     Active Substance: RIOCIGUAT
     Dosage: 0.5 MG, TID
  2. ADCIRCA [Concomitant]
     Active Substance: TADALAFIL
  3. VELETRI [Suspect]
     Active Substance: EPOPROSTENOL
     Indication: PULMONARY HYPERTENSION
     Dosage: 50 NG/KG, PER MIN
     Route: 042
  4. VELETRI [Suspect]
     Active Substance: EPOPROSTENOL
     Dosage: 30 NG/KG, PER MIN
     Route: 042
     Dates: start: 20161201
  5. ADEMPAS [Concomitant]
     Active Substance: RIOCIGUAT
     Dosage: 1 MG, UNK
  6. WARFARIN [Concomitant]
     Active Substance: WARFARIN

REACTIONS (21)
  - Viral infection [Unknown]
  - Migraine [Unknown]
  - Pyrexia [Unknown]
  - Pain [Unknown]
  - Blood pressure decreased [Unknown]
  - Fatigue [Unknown]
  - Vomiting [Unknown]
  - Dehydration [Unknown]
  - Hypokalaemia [Unknown]
  - Paraesthesia [Unknown]
  - Muscle tightness [Unknown]
  - Pain in extremity [Unknown]
  - Stress [Unknown]
  - Diarrhoea [Unknown]
  - Nausea [Unknown]
  - Dyspnoea [Unknown]
  - Listless [Unknown]
  - Dyspnoea exertional [Unknown]
  - Dysarthria [Unknown]
  - Dizziness [Unknown]
  - Neuropathy peripheral [Unknown]
